FAERS Safety Report 8305257-2 (Version None)
Quarter: 2012Q2

REPORT INFORMATION
  Report Type: 
  Country: None (occurrence: None)
  Receive Date: 20120423
  Receipt Date: 20120417
  Transmission Date: 20120825
  Serious: Yes (Hospitalization)
  Sender: FDA-Public Use
  Company Number: FR-SANOFI-AVENTIS-2012SA026494

PATIENT
  Age: 84 Year
  Sex: Male

DRUGS (7)
  1. REPAGLINIDE [Suspect]
     Route: 048
     Dates: end: 20120312
  2. POLYETHYLENE GLYCOL [Suspect]
     Route: 048
  3. PREDNISONE TAB [Suspect]
     Route: 048
  4. ALFUZOSIN HCL [Suspect]
     Route: 048
  5. LASIX [Suspect]
     Route: 048
     Dates: start: 20090101
  6. NITRODERM [Suspect]
     Route: 062
     Dates: start: 20090101
  7. METHOTREXATE [Suspect]
     Route: 048
     Dates: start: 20010101, end: 20120312

REACTIONS (1)
  - PULMONARY ALVEOLAR HAEMORRHAGE [None]
